FAERS Safety Report 9995433 (Version 1)
Quarter: 2014Q1

REPORT INFORMATION
  Report Type: Spontaneous
  Country: US (occurrence: None)
  Receive Date: 20140307
  Receipt Date: 20140307
  Transmission Date: 20141002
  Serious: No
  Sender: FDA-Public Use
  Company Number: None

PATIENT
  Age: 33 Year
  Sex: Female
  Weight: 70.31 kg

DRUGS (1)
  1. TORADOL [Suspect]
     Indication: MIGRAINE
     Dosage: SINGLE INJECTION INTO THE MUSCLE
     Route: 030
     Dates: start: 20140304

REACTIONS (9)
  - Dysarthria [None]
  - Dizziness [None]
  - Muscular weakness [None]
  - Thirst [None]
  - Muscle twitching [None]
  - Tremor [None]
  - Paraesthesia [None]
  - Deafness [None]
  - Feeling abnormal [None]
